FAERS Safety Report 12884233 (Version 7)
Quarter: 2017Q2

REPORT INFORMATION
  Report Type: Report from Study
  Country: DE (occurrence: DE)
  Receive Date: 20161026
  Receipt Date: 20170428
  Transmission Date: 20170830
  Serious: Yes (Other)
  Sender: FDA-Public Use
  Company Number: DE-ROCHE-1845558

PATIENT
  Age: 77 Year
  Sex: Female
  Weight: 63.3 kg

DRUGS (12)
  1. ATEZOLIZUMAB [Suspect]
     Active Substance: ATEZOLIZUMAB
     Indication: NON-SMALL CELL LUNG CANCER STAGE IV
     Dosage: MOST RECENT DOSE PRIOR TO NEUTROPENIA AND THE FIRST EPISODE OF LEUKOPENIA: 29/SEP/2016 AT 11:25
     Route: 042
     Dates: start: 20160929
  2. FOLIC ACID. [Concomitant]
     Active Substance: FOLIC ACID
     Route: 065
     Dates: start: 20160929
  3. ONDANSETRON [Concomitant]
     Active Substance: ONDANSETRON
     Route: 065
     Dates: start: 20160929, end: 20160929
  4. EMEND [Concomitant]
     Active Substance: APREPITANT
     Indication: PREMEDICATION
     Route: 065
     Dates: start: 20161026, end: 20161026
  5. MACROGOL [Concomitant]
     Active Substance: POLYETHYLENE GLYCOLS
     Indication: CONSTIPATION
     Route: 065
     Dates: start: 20161012, end: 20161101
  6. LEVOTHYROXIN [Concomitant]
     Active Substance: LEVOTHYROXINE
     Indication: HYPOTHYROIDISM
     Route: 065
     Dates: start: 20151202
  7. ONDANSETRON [Concomitant]
     Active Substance: ONDANSETRON
     Indication: PREMEDICATION
     Route: 065
     Dates: start: 20161026, end: 20161026
  8. EMEND [Concomitant]
     Active Substance: APREPITANT
     Route: 065
     Dates: start: 20160929, end: 20160929
  9. NAB-PACLITAXEL [Suspect]
     Active Substance: PACLITAXEL
     Indication: NON-SMALL CELL LUNG CANCER STAGE IV
     Dosage: MOST RECENT DOSE PRIOR TONEUTROPENIA AND THE FIRST EPISODE OF LEUKOPENIA: 07/OCT/2016, 169 MG AT 11:
     Route: 042
     Dates: start: 20160929
  10. CARBOPLATIN. [Suspect]
     Active Substance: CARBOPLATIN
     Indication: NON-SMALL CELL LUNG CANCER STAGE IV
     Dosage: DAY 1 OF EACH 21-DAY CYCLE FOR 4 OR 6 CYCLES?AUC = 6 MG/ML/MIN (PER PROTOCOL)?MOST RECENT DOSE PRIOR
     Route: 042
     Dates: start: 20160929
  11. SELENIUM [Concomitant]
     Active Substance: SELENIUM
     Route: 065
     Dates: start: 20160929
  12. COTRIM [Concomitant]
     Active Substance: SULFAMETHOXAZOLE\TRIMETHOPRIM
     Indication: INFECTION PROPHYLAXIS
     Route: 065
     Dates: start: 20161019, end: 20161213

REACTIONS (2)
  - Neutropenia [Recovered/Resolved]
  - Leukopenia [Recovered/Resolved]

NARRATIVE: CASE EVENT DATE: 20161012
